FAERS Safety Report 20804378 (Version 2)
Quarter: 2022Q2

REPORT INFORMATION
  Report Type: Spontaneous
  Country: DE (occurrence: DE)
  Receive Date: 20220509
  Receipt Date: 20220526
  Transmission Date: 20220720
  Serious: Yes (Other)
  Sender: FDA-Public Use
  Company Number: DE-GLAXOSMITHKLINE-DE2022EME073627

PATIENT

DRUGS (2)
  1. JEMPERLI [Suspect]
     Active Substance: DOSTARLIMAB-GXLY
     Indication: Endometrial cancer recurrent
     Dosage: 500 MG (EVERY 21 DAYS)
     Dates: start: 20211108, end: 20220117
  2. JEMPERLI [Suspect]
     Active Substance: DOSTARLIMAB-GXLY
     Dosage: 1000 MG (EVERY 6 WEEKS)
     Dates: start: 20220207, end: 20220321

REACTIONS (1)
  - Immune-mediated neuropathy [Not Recovered/Not Resolved]

NARRATIVE: CASE EVENT DATE: 20220426
